FAERS Safety Report 12352790 (Version 1)
Quarter: 2016Q2

REPORT INFORMATION
  Report Type: Spontaneous
  Country: US (occurrence: GB)
  Receive Date: 20160510
  Receipt Date: 20160510
  Transmission Date: 20160815
  Serious: Yes (Disabling)
  Sender: FDA-Public Use
  Company Number: GB-FRI-1000084571

PATIENT
  Age: 39 Year
  Sex: Female

DRUGS (2)
  1. BISACODYL. [Concomitant]
     Active Substance: BISACODYL
  2. LINACLOTIDE [Suspect]
     Active Substance: LINACLOTIDE
     Dosage: 82.8571 MCG (290 MCG TWICE A WEEK, 2 IN 1 W)
     Route: 048
     Dates: end: 20160330

REACTIONS (3)
  - Orthostatic hypotension [Not Recovered/Not Resolved]
  - Incorrect dose administered [Recovered/Resolved]
  - Off label use [Recovered/Resolved]
